FAERS Safety Report 8563291 (Version 13)
Quarter: 2019Q3

REPORT INFORMATION
  Report Type: Spontaneous
  Country: BR (occurrence: BR)
  Receive Date: 20120515
  Receipt Date: 20190731
  Transmission Date: 20191005
  Serious: Yes (Other)
  Sender: FDA-Public Use
  Company Number: BR-AMGEN-BRASP2012014204

PATIENT
  Age: 69 Year
  Sex: Male
  Weight: 79 kg

DRUGS (6)
  1. PRADAXA [Concomitant]
     Active Substance: DABIGATRAN ETEXILATE MESYLATE
     Indication: THROMBOSIS PROPHYLAXIS
     Dosage: UNK
     Dates: start: 20120501
  2. SIMVASTATIN. [Concomitant]
     Active Substance: SIMVASTATIN
     Indication: BLOOD CHOLESTEROL
     Dosage: 10 MILLIGRAM, QD
  3. PARACETAMOL [Concomitant]
     Active Substance: ACETAMINOPHEN
     Indication: PAIN
     Dosage: UNK
     Dates: start: 20120501
  4. ENBREL [Suspect]
     Active Substance: ETANERCEPT
     Indication: PSORIASIS
     Dosage: 50 MILLIGRAM, QWK
     Route: 058
     Dates: start: 20120224
  5. ENBREL [Suspect]
     Active Substance: ETANERCEPT
     Indication: PSORIATIC ARTHROPATHY
     Dosage: UNK
     Route: 065
  6. SIMVASTATIN. [Concomitant]
     Active Substance: SIMVASTATIN
     Indication: BLOOD CHOLESTEROL INCREASED
     Dosage: (STRENGTH 20MG) AT 1 TABLET, UNK

REACTIONS (17)
  - Blood uric acid increased [Not Recovered/Not Resolved]
  - Eye irritation [Recovering/Resolving]
  - Wound [Recovered/Resolved]
  - Pruritus [Not Recovered/Not Resolved]
  - Blood cholesterol increased [Unknown]
  - Dry eye [Recovering/Resolving]
  - Meniscus injury [Unknown]
  - Visual impairment [Recovering/Resolving]
  - Psoriasis [Unknown]
  - Fibula fracture [Unknown]
  - Tibia fracture [Unknown]
  - Erythema [Unknown]
  - Skin injury [Not Recovered/Not Resolved]
  - Lacrimation increased [Recovering/Resolving]
  - Gallbladder disorder [Unknown]
  - Chromaturia [Unknown]
  - Fall [Unknown]

NARRATIVE: CASE EVENT DATE: 20120224
